FAERS Safety Report 9515406 (Version 1)
Quarter: 2013Q1

REPORT INFORMATION
  Report Type: Spontaneous
  Country: US (occurrence: None)
  Receive Date: 20130305
  Receipt Date: 20130305
  Transmission Date: 20140127
  Serious: Yes (Hospitalization)
  Sender: FDA-Public Use
  Company Number: 163-21880-12114058

PATIENT
  Age: 89 Year
  Sex: Male

DRUGS (12)
  1. REVLIMID [Suspect]
     Indication: PLASMA CELL MYELOMA
     Route: 048
     Dates: start: 20120914
  2. ASA (ACETYLSALICYLIC ACID) [Concomitant]
  3. WHOLE BLOOD [Concomitant]
  4. MVI (MVI) [Concomitant]
  5. FOLIC ACID (FOLIC ACID) [Concomitant]
  6. AMLODIPINE (AMLODIPINE) [Concomitant]
  7. METOPROLOL ER (METOPROLOL)? [Concomitant]
  8. FISH OIL (FISH OIL) [Concomitant]
  9. PREDNISONE (PREDNISONE) [Concomitant]
  10. VITAMIN B12 (CYANOCOBALAMIN) [Concomitant]
  11. VITAMIN D (ERGOCALCIFEROL) [Concomitant]
  12. DIOVAN (VALSARTAN) [Concomitant]

REACTIONS (2)
  - Full blood count decreased [None]
  - Epistaxis [None]
